FAERS Safety Report 9537480 (Version 1)
Quarter: 2013Q3

REPORT INFORMATION
  Report Type: Spontaneous
  Country: JP (occurrence: JP)
  Receive Date: 20130919
  Receipt Date: 20130919
  Transmission Date: 20140515
  Serious: Yes (Other)
  Sender: FDA-Public Use
  Company Number: JP-GLAXOSMITHKLINE-B0923866A

PATIENT
  Sex: Male

DRUGS (4)
  1. PAXIL [Suspect]
     Indication: SOCIAL PHOBIA
     Route: 048
     Dates: start: 2008
  2. CYMBALTA [Concomitant]
     Route: 048
     Dates: start: 2012
  3. MEILAX [Concomitant]
     Route: 048
  4. PARIET [Concomitant]
     Indication: GASTROOESOPHAGEAL REFLUX DISEASE
     Route: 048
     Dates: start: 2008

REACTIONS (9)
  - Haematochezia [Not Recovered/Not Resolved]
  - Suicide attempt [Unknown]
  - Somnolence [Unknown]
  - Haemorrhoids [Unknown]
  - Yawning [Unknown]
  - Panic disorder [Unknown]
  - Chest discomfort [Unknown]
  - Hot flush [Unknown]
  - Feeling hot [Unknown]
